FAERS Safety Report 4988168-X (Version None)
Quarter: 2006Q2

REPORT INFORMATION
  Report Type: 
  Country: None (occurrence: None)
  Receive Date: 20060501
  Receipt Date: 20060424
  Transmission Date: 20061013
  Serious: Yes (Death, Hospitalization)
  Sender: FDA-Public Use
  Company Number: DE-MERCK-0604DEU00122

PATIENT
  Sex: Male

DRUGS (1)
  1. VIOXX [Suspect]
     Indication: OSTEOARTHRITIS
     Route: 048
     Dates: start: 20011211, end: 20031105

REACTIONS (4)
  - CEREBRAL INFARCTION [None]
  - DEATH [None]
  - HYPERTENSION [None]
  - RENAL FAILURE [None]
